FAERS Safety Report 21774557 (Version 1)
Quarter: 2022Q4

REPORT INFORMATION
  Report Type: Spontaneous
  Country: FR (occurrence: FR)
  Receive Date: 20221224
  Receipt Date: 20221224
  Transmission Date: 20230113
  Serious: Yes (Hospitalization, Other)
  Sender: FDA-Public Use
  Company Number: FR-AFSSAPS-PO20222007

PATIENT
  Age: 74 Year
  Sex: Male
  Weight: 95 kg

DRUGS (2)
  1. CEFTRIAXONE [Suspect]
     Active Substance: CEFTRIAXONE
     Indication: Urinary tract infection
     Dosage: UNK,POSOLOGIE NON CONNUE
     Route: 030
     Dates: start: 20221109, end: 20221111
  2. CIPROFLOXACIN HYDROCHLORIDE [Suspect]
     Active Substance: CIPROFLOXACIN HYDROCHLORIDE
     Indication: Urinary tract infection
     Dosage: 1000 MILLIGRAM, ONCE A DAY (500MG X 2 PAR JOUR)
     Route: 048
     Dates: start: 20221109, end: 20221115

REACTIONS (1)
  - Cutaneous vasculitis [Recovered/Resolved]

NARRATIVE: CASE EVENT DATE: 20221115
